FAERS Safety Report 21193533 (Version 1)
Quarter: 2022Q3

REPORT INFORMATION
  Report Type: Report from Study
  Country: US (occurrence: None)
  Receive Date: 20220810
  Receipt Date: 20220810
  Transmission Date: 20221027
  Serious: Yes (Other)
  Sender: FDA-Public Use
  Company Number: US-ROCHE-2957646

PATIENT
  Age: 59 Year
  Sex: Male
  Weight: 80.28 kg

DRUGS (20)
  1. PERTUZUMAB\TRASTUZUMAB [Suspect]
     Active Substance: PERTUZUMAB\TRASTUZUMAB
     Indication: Neoplasm
     Dosage: A LOADING DOSE OF 1200 MG SC PERTUZUMAB AND 600 MG SC TRASTUZUMAB IS THEN FOLLOWED BY A MAINTENANCE
     Route: 058
     Dates: start: 20210517
  2. JARDIANCE [Concomitant]
     Active Substance: EMPAGLIFLOZIN
     Indication: Diabetes mellitus
     Route: 048
     Dates: start: 202001
  3. PANTOPRAZOLE [Concomitant]
     Active Substance: PANTOPRAZOLE
     Indication: Gastrooesophageal reflux disease
     Route: 048
     Dates: start: 202001
  4. PRIMIDONE [Concomitant]
     Active Substance: PRIMIDONE
     Indication: Essential tremor
     Route: 048
     Dates: start: 202001
  5. NOVOLOG [Concomitant]
     Active Substance: INSULIN ASPART
     Indication: Diabetes mellitus
     Route: 058
     Dates: start: 20200501, end: 20211029
  6. NOVOLOG [Concomitant]
     Active Substance: INSULIN ASPART
     Route: 058
     Dates: start: 20211029
  7. XGEVA [Concomitant]
     Active Substance: DENOSUMAB
     Indication: Metastases to bone
     Route: 058
     Dates: start: 20210607
  8. TYLENOL [Concomitant]
     Active Substance: ACETAMINOPHEN
     Indication: Headache
     Route: 048
     Dates: start: 20210710
  9. MAGNESIUM [Concomitant]
     Active Substance: MAGNESIUM
     Route: 048
     Dates: start: 20210824
  10. ZINC [Concomitant]
     Active Substance: ZINC
     Route: 048
     Dates: start: 20210824
  11. VITAMIN B COMPLEX [Concomitant]
     Active Substance: CYANOCOBALAMIN\DEXPANTHENOL\NIACINAMIDE\PYRIDOXINE HYDROCHLORIDE\RIBOFLAVIN 5^-PHOSPHATE SODIUM\THIA
     Route: 048
     Dates: start: 20210824
  12. ALEVE PM [Concomitant]
     Active Substance: DIPHENHYDRAMINE HYDROCHLORIDE\NAPROXEN SODIUM
     Indication: Muscle spasms
     Route: 048
     Dates: start: 20211009
  13. LORAZEPAM [Concomitant]
     Active Substance: LORAZEPAM
     Indication: Anxiety
     Route: 048
     Dates: start: 20211013
  14. IMODIUM [Concomitant]
     Active Substance: LOPERAMIDE HYDROCHLORIDE
     Indication: Diarrhoea
     Dosage: MG
     Route: 048
     Dates: start: 20211102
  15. MESALAMINE [Concomitant]
     Active Substance: MESALAMINE
     Indication: Colitis
     Dosage: TABLET
     Route: 048
     Dates: start: 202104
  16. COLESTIPOL [Concomitant]
     Active Substance: COLESTIPOL
     Route: 048
     Dates: start: 202104
  17. HYOSCYAMINE [Concomitant]
     Active Substance: HYOSCYAMINE
     Indication: Colitis
     Route: 048
     Dates: start: 202104
  18. HYOSCYAMINE [Concomitant]
     Active Substance: HYOSCYAMINE
     Route: 048
     Dates: start: 20211101
  19. LANTUS SOLOSTAR [Concomitant]
     Active Substance: INSULIN GLARGINE
     Indication: Diabetes mellitus
     Route: 058
     Dates: start: 20200501, end: 20211029
  20. INFLIXIMAB [Concomitant]
     Active Substance: INFLIXIMAB
     Dosage: MG
     Route: 042
     Dates: start: 20211208, end: 20220404

REACTIONS (1)
  - Colitis [Recovered/Resolved]

NARRATIVE: CASE EVENT DATE: 20211105
